FAERS Safety Report 21813008 (Version 1)
Quarter: 2023Q1

REPORT INFORMATION
  Report Type: Spontaneous
  Country: US (occurrence: None)
  Receive Date: 20230102
  Receipt Date: 20230102
  Transmission Date: 20230417
  Serious: Yes (Other)
  Sender: FDA-Public Use
  Company Number: None

PATIENT
  Sex: Female
  Weight: 16.65 kg

DRUGS (3)
  1. MIRALAX [Suspect]
     Active Substance: POLYETHYLENE GLYCOL 3350
     Indication: Constipation
     Route: 048
     Dates: start: 20161201, end: 20221201
  2. SENNOSIDES [Concomitant]
     Active Substance: SENNOSIDES
  3. CHILDREN^S MULTIVITAMIN [Concomitant]

REACTIONS (13)
  - Metabolic acidosis [None]
  - Toxicity to various agents [None]
  - Respiratory rate increased [None]
  - Hypopnoea [None]
  - Lethargy [None]
  - Confusional state [None]
  - Pyrexia [None]
  - Urinary tract infection [None]
  - Aggression [None]
  - Mood swings [None]
  - Anxiety [None]
  - Depression [None]
  - Anger [None]
